FAERS Safety Report 8473584-4 (Version None)
Quarter: 2012Q2

REPORT INFORMATION
  Report Type: 
  Country: None (occurrence: None)
  Receive Date: 20120628
  Receipt Date: 20110919
  Transmission Date: 20120825
  Serious: Yes (Hospitalization, Other)
  Sender: FDA-Public Use
  Company Number: US-MYLANLABS-2011S1012653

PATIENT
  Age: 45 Year
  Sex: Male
  Weight: 103.87 kg

DRUGS (6)
  1. LEXAPRO [Concomitant]
  2. ZYPREXA [Concomitant]
  3. CHEMOTHERAPEUTICS [Suspect]
     Indication: LYMPHOMA
     Dates: start: 20110101, end: 20110401
  4. LORAZEPAM [Concomitant]
  5. CLOZAPINE [Suspect]
     Indication: SCHIZOAFFECTIVE DISORDER
     Route: 048
     Dates: start: 19980101, end: 20110101
  6. CLOZAPINE [Suspect]
     Route: 048
     Dates: start: 20110401, end: 20110601

REACTIONS (2)
  - LEUKOPENIA [None]
  - GRANULOCYTOPENIA [None]
